FAERS Safety Report 15686357 (Version 1)
Quarter: 2018Q4

REPORT INFORMATION
  Report Type: Spontaneous
  Country: SK (occurrence: SK)
  Receive Date: 20181204
  Receipt Date: 20181204
  Transmission Date: 20190205
  Serious: Yes (Hospitalization)
  Sender: FDA-Public Use
  Company Number: SK-NOVOPROD-632294

PATIENT
  Age: 14 Year
  Sex: Female
  Weight: 35.5 kg

DRUGS (4)
  1. NORDITROPIN [Suspect]
     Active Substance: SOMATROPIN
     Dosage: 2 MG, QD
     Route: 058
  2. ZENARO [Concomitant]
     Active Substance: LEVOCETIRIZINE
     Indication: RHINITIS ALLERGIC
     Dosage: UNK
     Route: 065
  3. NORDITROPIN [Suspect]
     Active Substance: SOMATROPIN
     Indication: PRODUCT USED FOR UNKNOWN INDICATION
     Dosage: 2 MG, QD
     Route: 058
  4. MOMETASONE [Concomitant]
     Active Substance: MOMETASONE
     Indication: RHINITIS ALLERGIC
     Dosage: UNK
     Route: 065

REACTIONS (1)
  - Glaucoma [Unknown]

NARRATIVE: CASE EVENT DATE: 2018
